FAERS Safety Report 19559675 (Version 6)
Quarter: 2022Q1

REPORT INFORMATION
  Report Type: Report from Study
  Country: US (occurrence: US)
  Receive Date: 20210716
  Receipt Date: 20220204
  Transmission Date: 20220423
  Serious: Yes (Other)
  Sender: FDA-Public Use
  Company Number: US-UCBSA-2021024691

PATIENT
  Sex: Male

DRUGS (2)
  1. CERTOLIZUMAB PEGOL [Suspect]
     Active Substance: CERTOLIZUMAB PEGOL
     Indication: Ankylosing spondylitis
     Dosage: 400 MILLIGRAM, EV 2 WEEKS(QOW)
     Dates: start: 20200810, end: 202101
  2. CERTOLIZUMAB PEGOL [Suspect]
     Active Substance: CERTOLIZUMAB PEGOL
     Dosage: 400 MILLIGRAM, EV 4 WEEKS
     Dates: start: 20210503, end: 202109

REACTIONS (9)
  - Abnormal loss of weight [Not Recovered/Not Resolved]
  - Sepsis [Not Recovered/Not Resolved]
  - Enterococcal infection [Unknown]
  - Bacteraemia [Unknown]
  - Cardiac infection [Not Recovered/Not Resolved]
  - Aortic valve repair [Not Recovered/Not Resolved]
  - Illness [Recovered/Resolved]
  - Ankylosing spondylitis [Not Recovered/Not Resolved]
  - Therapeutic response shortened [Unknown]

NARRATIVE: CASE EVENT DATE: 20210101
